FAERS Safety Report 5011385-X (Version None)
Quarter: 2006Q2

REPORT INFORMATION
  Report Type: 
  Country: None (occurrence: None)
  Receive Date: 20060404
  Receipt Date: 20060111
  Transmission Date: 20061013
  Serious: No
  Sender: FDA-Public Use
  Company Number: US200601001813

PATIENT
  Age: 57 Year
  Sex: Female

DRUGS (2)
  1. CYMBALTA [Suspect]
     Indication: DEPRESSION
     Dosage: 30 MG, DAILY (1/D), ORAL
     Route: 048
     Dates: start: 20060106
  2. HYDROCHLOROTHIAZIDE [Concomitant]

REACTIONS (3)
  - ASTHENOPIA [None]
  - FACE OEDEMA [None]
  - OEDEMA PERIPHERAL [None]
